FAERS Safety Report 12456639 (Version 2)
Quarter: 2016Q3

REPORT INFORMATION
  Report Type: Report from Study
  Country: MX (occurrence: MX)
  Receive Date: 20160610
  Receipt Date: 20160719
  Transmission Date: 20161109
  Serious: Yes (Other)
  Sender: FDA-Public Use
  Company Number: MX-BAYER-2016-100869

PATIENT
  Age: 80 Year
  Sex: Male

DRUGS (1)
  1. NEXAVAR [Suspect]
     Active Substance: SORAFENIB
     Indication: RENAL CANCER
     Dosage: 400 MG, BID
     Route: 048
     Dates: start: 20160202

REACTIONS (3)
  - Palmar-plantar erythrodysaesthesia syndrome [Recovering/Resolving]
  - Decreased appetite [Recovering/Resolving]
  - Hypophagia [Recovering/Resolving]

NARRATIVE: CASE EVENT DATE: 20160502
